FAERS Safety Report 13706957 (Version 1)
Quarter: 2017Q2

REPORT INFORMATION
  Report Type: Spontaneous
  Country: US (occurrence: US)
  Receive Date: 20170630
  Receipt Date: 20170630
  Transmission Date: 20170830
  Serious: No
  Sender: FDA-Public Use
  Company Number: US-BRISTOL-MYERS SQUIBB COMPANY-BMS-2017-055580

PATIENT
  Sex: Female
  Weight: 57.6 kg

DRUGS (1)
  1. ELIQUIS [Suspect]
     Active Substance: APIXABAN
     Indication: CEREBROVASCULAR ACCIDENT PROPHYLAXIS
     Dosage: 0.5 TAB, BID
     Route: 048
     Dates: start: 20170303

REACTIONS (6)
  - Intentional product misuse [Unknown]
  - Hypersomnia [Unknown]
  - Hypoaesthesia [Unknown]
  - Myalgia [Unknown]
  - Chromaturia [Unknown]
  - Arthralgia [Unknown]
